FAERS Safety Report 6718212-0 (Version None)
Quarter: 2010Q2

REPORT INFORMATION
  Report Type: 
  Country: None (occurrence: None)
  Receive Date: 20100510
  Receipt Date: 20100428
  Transmission Date: 20101027
  Serious: Yes (Death, Hospitalization, Other)
  Sender: FDA-Public Use
  Company Number: US-PFIZER INC-2010043794

PATIENT
  Sex: Female
  Weight: 60 kg

DRUGS (12)
  1. ADRIAMYCIN PFS [Suspect]
     Indication: BREAST CANCER
     Dosage: 83 MG, UNK
     Route: 042
     Dates: start: 20100210, end: 20100210
  2. CYTOXAN [Suspect]
     Indication: BREAST CANCER
     Dosage: 830 MG
     Route: 042
     Dates: start: 20100210, end: 20100210
  3. TAXOTERE [Suspect]
     Dosage: 1 DF, UNK
     Route: 041
  4. TAXOTERE [Suspect]
     Dosage: 3 DF, UNK
     Route: 041
  5. DEXAMETHASONE [Concomitant]
     Dosage: 10 MG, 1X/DAY
     Route: 042
  6. NEULASTA [Concomitant]
     Dosage: 6 MG, 1X/DAY
     Dates: start: 20100211
  7. EMEND [Concomitant]
     Dosage: UNK
     Dates: start: 20100209
  8. ZOFRAN [Concomitant]
     Dosage: 8 MG, 3X/DAY AS NEEDED
     Dates: start: 20100210
  9. LORAZEPAM [Concomitant]
     Dosage: 1 MG, 3X/DAY AS NEEDED
  10. COMPAZINE [Concomitant]
     Dosage: 10 MG, 4X/DAY AS NEEDED
     Dates: start: 20100210
  11. BUSPAR [Concomitant]
     Dosage: 15 MG, DAILY
  12. FLUOXETINE [Concomitant]
     Dosage: 80 MG, DAILY

REACTIONS (9)
  - ABDOMINAL PAIN [None]
  - CAECITIS [None]
  - GASTROINTESTINAL NECROSIS [None]
  - INTESTINAL PERFORATION [None]
  - NAUSEA [None]
  - SEPSIS [None]
  - SEPTIC SHOCK [None]
  - VOMITING [None]
  - WHITE BLOOD CELL COUNT DECREASED [None]
